FAERS Safety Report 7569387-5 (Version None)
Quarter: 2011Q2

REPORT INFORMATION
  Report Type: 
  Country: None (occurrence: None)
  Receive Date: 20110623
  Receipt Date: 20110616
  Transmission Date: 20111010
  Serious: Yes (Hospitalization)
  Sender: FDA-Public Use
  Company Number: JP-MERCK-1106USA02760

PATIENT
  Age: 8 Year
  Sex: Female

DRUGS (9)
  1. PEPCID [Suspect]
     Indication: PROPHYLAXIS AGAINST GASTROINTESTINAL ULCER
     Route: 048
     Dates: start: 20110419, end: 20110610
  2. ACTEMRA [Concomitant]
     Route: 041
     Dates: start: 20110519, end: 20110519
  3. ACTEMRA [Concomitant]
     Route: 041
     Dates: start: 20110530, end: 20110530
  4. LIMETHASON [Suspect]
     Indication: JUVENILE ARTHRITIS
     Dosage: 7 TIMES
     Route: 041
     Dates: start: 20110426, end: 20110526
  5. FOSAMAX [Suspect]
     Indication: OSTEOPOROSIS PROPHYLAXIS
     Route: 048
     Dates: start: 20110512, end: 20110609
  6. ACYCLOVIR [Suspect]
     Indication: ANTIVIRAL PROPHYLAXIS
     Route: 048
     Dates: start: 20110428, end: 20110511
  7. ACTEMRA [Concomitant]
     Route: 041
     Dates: start: 20110610, end: 20110610
  8. PREDNISOLONE [Concomitant]
     Indication: JUVENILE ARTHRITIS
     Route: 048
     Dates: start: 20110527
  9. ACTEMRA [Concomitant]
     Indication: JUVENILE ARTHRITIS
     Route: 041
     Dates: start: 20110512, end: 20110512

REACTIONS (2)
  - LIVER DISORDER [None]
  - OVERDOSE [None]
